FAERS Safety Report 9772553 (Version 1)
Quarter: 2013Q4

REPORT INFORMATION
  Report Type: Spontaneous
  Country: US (occurrence: US)
  Receive Date: 20131219
  Receipt Date: 20131219
  Transmission Date: 20140711
  Serious: Yes (Other)
  Sender: FDA-Public Use
  Company Number: US-BAYER-2013-154023

PATIENT
  Age: 27 Year
  Sex: Female

DRUGS (6)
  1. YAZ [Suspect]
  2. GIANVI [Suspect]
  3. ORPHENADRINE CITRATE [Concomitant]
     Indication: PAIN
     Dosage: 100 MG, BID
     Route: 048
  4. HYDROCODONE W/IBUPROFEN [Concomitant]
     Indication: PAIN
     Dosage: 7.5MG/200 MG EVERY 4 TO 6 HOURS AS NEEDED
     Route: 048
  5. PROMETHAZIN [Concomitant]
     Dosage: TAKE 5 ML EVERY 4 HOURS AS NEEDED
     Route: 048
  6. METRONIDAZOLE [Concomitant]
     Dosage: 500 MG, BID FOR 7 DAYS
     Route: 048

REACTIONS (3)
  - Biliary dyskinesia [None]
  - Cholecystitis chronic [None]
  - Cholecystectomy [None]
